FAERS Safety Report 8053057-3 (Version None)
Quarter: 2012Q1

REPORT INFORMATION
  Report Type: 
  Country: None (occurrence: None)
  Receive Date: 20120112
  Receipt Date: 20120107
  Transmission Date: 20120608
  Serious: Yes (Other)
  Sender: FDA-Public Use
  Company Number: CRC-11-228

PATIENT
  Age: 51 Year
  Sex: Female
  Weight: 65.7716 kg

DRUGS (3)
  1. PHENYTOIN SODIUM [Suspect]
     Indication: CONVULSION
     Dosage: 2 TO 5 CAPS DAILY; ORAL
     Route: 048
     Dates: start: 20110812
  2. LEVOTHYROXINE SODIUM [Concomitant]
  3. VITAMIN E + CALCIUM [Concomitant]

REACTIONS (4)
  - CONSTIPATION [None]
  - ANTICONVULSANT DRUG LEVEL INCREASED [None]
  - SOMNOLENCE [None]
  - CONFUSIONAL STATE [None]
